FAERS Safety Report 24996922 (Version 2)
Quarter: 2025Q1

REPORT INFORMATION
  Report Type: Spontaneous
  Country: CH (occurrence: CH)
  Receive Date: 20250221
  Receipt Date: 20250226
  Transmission Date: 20250409
  Serious: Yes (Hospitalization, Other)
  Sender: PFIZER
  Company Number: CH-PFIZER INC-PV202500020886

PATIENT
  Age: 38 Year
  Sex: Male

DRUGS (22)
  1. CRESEMBA [Suspect]
     Active Substance: ISAVUCONAZONIUM SULFATE
     Dosage: 200 MILLIGRAM, QD
     Route: 048
     Dates: start: 20241113, end: 20241130
  2. CRESEMBA [Suspect]
     Active Substance: ISAVUCONAZONIUM SULFATE
     Dosage: 300 MILLIGRAM, QD
     Route: 048
     Dates: start: 20241201, end: 20241203
  3. CRESEMBA [Suspect]
     Active Substance: ISAVUCONAZONIUM SULFATE
     Dosage: 200 MILLIGRAM, QD
     Route: 048
     Dates: start: 20241204
  4. PIPERACILLIN SODIUM\TAZOBACTAM SODIUM [Suspect]
     Active Substance: PIPERACILLIN SODIUM\TAZOBACTAM SODIUM
     Dosage: 4.5 GRAM, Q6H
     Route: 042
     Dates: start: 20241029, end: 20241211
  5. PIPERACILLIN SODIUM\TAZOBACTAM SODIUM [Suspect]
     Active Substance: PIPERACILLIN SODIUM\TAZOBACTAM SODIUM
     Dosage: 4.5 GRAM, Q8H
     Route: 042
     Dates: start: 20241212
  6. DAFALGAN [Suspect]
     Active Substance: ACETAMINOPHEN
     Dosage: 1000 MG, 3X/DAY
     Route: 048
     Dates: start: 20241024, end: 20241204
  7. ENOXAPARIN [Suspect]
     Active Substance: ENOXAPARIN
     Route: 065
     Dates: start: 20241025, end: 20241211
  8. ESOMEPRAZOLE MAGNESIUM [Suspect]
     Active Substance: ESOMEPRAZOLE MAGNESIUM
     Dosage: 20 MG, 1X/DAY
     Route: 048
     Dates: start: 20241024, end: 20241024
  9. ESOMEPRAZOLE MAGNESIUM [Suspect]
     Active Substance: ESOMEPRAZOLE MAGNESIUM
     Dosage: 20 MG, 1X/DAY
     Route: 048
     Dates: start: 20241104, end: 20241211
  10. VANCOMYCIN [Suspect]
     Active Substance: VANCOMYCIN
     Dosage: 1250 MILLIGRAM, Q12H
     Route: 042
     Dates: start: 20241029, end: 20241211
  11. ASPIRIN [Concomitant]
     Active Substance: ASPIRIN
  12. FOLIC ACID [Concomitant]
     Active Substance: FOLIC ACID
     Dates: end: 20241211
  13. ALBUMIN HUMAN [Concomitant]
     Active Substance: ALBUMIN HUMAN
     Dates: start: 20241203, end: 20241203
  14. ENTEROCOCCUS FAECALIS [Concomitant]
     Active Substance: ENTEROCOCCUS FAECALIS
     Dates: start: 20241203, end: 20241203
  15. BUTYLSCOPOLAMINE [Concomitant]
     Active Substance: BUTYLSCOPOLAMINE
     Dates: start: 20241130, end: 20241203
  16. CLONIDINE [Concomitant]
     Active Substance: CLONIDINE
     Dates: start: 20241028, end: 20241102
  17. GABAPENTIN [Concomitant]
     Active Substance: GABAPENTIN
     Dates: start: 20241031
  18. MAGNESIUM CARBONATE [Concomitant]
     Active Substance: MAGNESIUM CARBONATE
     Dates: start: 20241203, end: 20241203
  19. MELATONIN [Concomitant]
     Active Substance: MELATONIN
     Dates: start: 20241125, end: 20241203
  20. MORPHINE [Concomitant]
     Active Substance: MORPHINE
     Dates: start: 20241024
  21. POTASSIUM [Concomitant]
     Active Substance: POTASSIUM
     Dates: start: 20241114
  22. TIZANIDINE [Concomitant]
     Active Substance: TIZANIDINE
     Dates: start: 20241130, end: 20241203

REACTIONS (8)
  - Mixed liver injury [Recovering/Resolving]
  - Drug reaction with eosinophilia and systemic symptoms [Recovering/Resolving]
  - Eosinophilia [Recovered/Resolved]
  - Pyrexia [Recovering/Resolving]
  - Nausea [Recovered/Resolved]
  - Abdominal pain [Recovering/Resolving]
  - Rash maculo-papular [Unknown]
  - Off label use [Unknown]

NARRATIVE: CASE EVENT DATE: 20241126
